FAERS Safety Report 9886653 (Version 2)
Quarter: 2014Q1

REPORT INFORMATION
  Report Type: Report from Study
  Country: AR (occurrence: AR)
  Receive Date: 20140210
  Receipt Date: 20140210
  Transmission Date: 20141002
  Serious: Yes (Other)
  Sender: FDA-Public Use
  Company Number: PHHY2013AR085203

PATIENT
  Age: 58 Year
  Sex: Male

DRUGS (2)
  1. TASIGNA [Suspect]
     Indication: CHRONIC MYELOID LEUKAEMIA
     Dosage: 300 MG, PER DAY
     Route: 048
     Dates: start: 201207
  2. TASIGNA [Suspect]
     Dosage: 150 MG, PER DAY
     Route: 048

REACTIONS (2)
  - Arterial disorder [Recovering/Resolving]
  - Chest pain [Recovering/Resolving]
